FAERS Safety Report 11116357 (Version 1)
Quarter: 2015Q2

REPORT INFORMATION
  Report Type: Spontaneous
  Country: US (occurrence: None)
  Receive Date: 20150514
  Receipt Date: 20150514
  Transmission Date: 20150821
  Serious: Yes (Life-Threatening, Disabling)
  Sender: FDA-Public Use
  Company Number: None

PATIENT
  Age: 82 Year
  Sex: Male
  Weight: 71.67 kg

DRUGS (5)
  1. CRAN MAX CAPS. [Concomitant]
  2. MAG 64 [Concomitant]
  3. TETRACYCLINE 500 MG BID GENERIC WALMART MCKESSON, HERITAGE PHARMACETUS NJ [Suspect]
     Active Substance: TETRACYCLINE
     Indication: ANGINA PECTORIS
     Dates: start: 20150405, end: 20150503
  4. TART CHERRY CAPSULES [Concomitant]
  5. LEVOTHYROXINE [Concomitant]
     Active Substance: LEVOTHYROXINE

REACTIONS (1)
  - Angina pectoris [None]

NARRATIVE: CASE EVENT DATE: 201504
